FAERS Safety Report 14833667 (Version 1)
Quarter: 2018Q2

REPORT INFORMATION
  Report Type: Spontaneous
  Country: US (occurrence: US)
  Receive Date: 20180501
  Receipt Date: 20180501
  Transmission Date: 20180711
  Serious: No
  Sender: FDA-Public Use
  Company Number: US-ROCHE-2098864

PATIENT
  Age: 57 Year
  Sex: Male

DRUGS (2)
  1. DENOSUMAB [Concomitant]
     Active Substance: DENOSUMAB
     Dosage: ONGOING: UNKNOWN
     Route: 065
     Dates: start: 20140206
  2. ALECENSA [Suspect]
     Active Substance: ALECTINIB HYDROCHLORIDE
     Indication: LUNG ADENOCARCINOMA
     Route: 065
     Dates: start: 20160623, end: 20170330

REACTIONS (2)
  - No adverse event [Unknown]
  - Drug ineffective [Unknown]
